FAERS Safety Report 7492365-1 (Version None)
Quarter: 2011Q2

REPORT INFORMATION
  Report Type: 
  Country: None (occurrence: None)
  Receive Date: 20110519
  Receipt Date: 20101223
  Transmission Date: 20111010
  Serious: Yes (Hospitalization)
  Sender: FDA-Public Use
  Company Number: US-BAYER-2010-003198

PATIENT
  Sex: Female
  Weight: 70 kg

DRUGS (1)
  1. YAZ [Suspect]
     Indication: CONTRACEPTION
     Dosage: UNK UNK, QD
     Dates: start: 20080801, end: 20090101

REACTIONS (6)
  - FOOD INTOLERANCE [None]
  - DYSPEPSIA [None]
  - ABDOMINAL PAIN [None]
  - BILIARY TRACT DISORDER [None]
  - DYSPNOEA [None]
  - ABDOMINAL PAIN UPPER [None]
